FAERS Safety Report 17059537 (Version 2)
Quarter: 2020Q1

REPORT INFORMATION
  Report Type: Spontaneous
  Country: HU (occurrence: HU)
  Receive Date: 20191121
  Receipt Date: 20200127
  Transmission Date: 20200409
  Serious: Yes (Other)
  Sender: FDA-Public Use
  Company Number: HU-MYLANLABS-2019M1111025

PATIENT
  Age: 44 Year
  Sex: Female

DRUGS (16)
  1. KISQALI [Suspect]
     Active Substance: RIBOCICLIB
     Dosage: UNK, CYCLIC (6TH CYCLE)
     Route: 065
     Dates: start: 20190401
  2. KISQALI [Suspect]
     Active Substance: RIBOCICLIB
     Dosage: UNK, CYCLIC (7TH CYCLE)
     Route: 065
     Dates: start: 20190429
  3. KISQALI [Suspect]
     Active Substance: RIBOCICLIB
     Dosage: 2 DF, CYCLIC (3RD CYCLE) (2 TABLETS)
     Dates: start: 20190103
  4. KISQALI [Suspect]
     Active Substance: RIBOCICLIB
     Dosage: UNK, CYCLIC (8TH CYCLE)
     Route: 065
     Dates: start: 20190527
  5. KISQALI [Suspect]
     Active Substance: RIBOCICLIB
     Dosage: 2 DF, CYCLIC (3RD CYCLE) (3 TABLETS)
     Route: 065
     Dates: start: 20181223
  6. KISQALI [Suspect]
     Active Substance: RIBOCICLIB
     Dosage: UNK, CYCLIC (10TH CYCLE)
     Dates: start: 20190722
  7. KISQALI [Suspect]
     Active Substance: RIBOCICLIB
     Dosage: UNK, CYCLIC (5TH CYCLE)
     Route: 065
     Dates: start: 20190304
  8. KISQALI [Suspect]
     Active Substance: RIBOCICLIB
     Dosage: UNK, CYCLIC (12TH CYCLE)
     Dates: start: 20190923
  9. ZOLEDRONIC ACID [Suspect]
     Active Substance: ZOLEDRONIC ACID
     Indication: PRODUCT USED FOR UNKNOWN INDICATION
     Dosage: UNK
     Route: 065
     Dates: start: 2018
  10. KISQALI [Suspect]
     Active Substance: RIBOCICLIB
     Indication: PRODUCT USED FOR UNKNOWN INDICATION
     Dosage: UNK, CYCLIC (4TH CYCLE)
     Route: 065
     Dates: start: 20190204
  11. KISQALI [Suspect]
     Active Substance: RIBOCICLIB
     Dosage: 3 DF, CYCLIC (3 TABLETS)
     Route: 065
     Dates: start: 20181015
  12. KISQALI [Suspect]
     Active Substance: RIBOCICLIB
     Dosage: UNK, CYCLIC (9TH CYCLE)
     Dates: start: 20190624
  13. LETROZOLE. [Suspect]
     Active Substance: LETROZOLE
     Indication: PRODUCT USED FOR UNKNOWN INDICATION
     Dosage: UNK
     Route: 065
     Dates: start: 2018
  14. KISQALI [Suspect]
     Active Substance: RIBOCICLIB
     Dosage: UNK, CYCLIC (2ND CYCLE) (3 TABLETS)
     Route: 065
     Dates: start: 20181119
  15. KISQALI [Suspect]
     Active Substance: RIBOCICLIB
     Dosage: UNK, CYCLIC (2ND CYCLE) (3 TABLETS)
     Dates: start: 20181206
  16. KISQALI [Suspect]
     Active Substance: RIBOCICLIB
     Dosage: UNK, CYCLIC (11TH CYCLE)
     Dates: start: 20190826

REACTIONS (6)
  - Fatigue [Unknown]
  - Electrocardiogram QT prolonged [Recovered/Resolved]
  - Neutropenia [Unknown]
  - Pelvic fluid collection [Unknown]
  - Neutrophil count decreased [Recovering/Resolving]
  - Photosensitivity reaction [Unknown]
